FAERS Safety Report 21180138 (Version 1)
Quarter: 2022Q3

REPORT INFORMATION
  Report Type: Report from Study
  Country: CA (occurrence: CA)
  Receive Date: 20220805
  Receipt Date: 20220805
  Transmission Date: 20221027
  Serious: Yes (Other)
  Sender: FDA-Public Use
  Company Number: CA-CELLTRION INC.-2022CA012440

PATIENT

DRUGS (1)
  1. TRUXIMA [Suspect]
     Active Substance: RITUXIMAB-ABBS
     Indication: Hodgkin^s disease
     Dosage: TOTAL QUANTITY REQUESETED: 670MG IV X 1DOSE (375MG/M2/ BSA: 1.72)
     Route: 042

REACTIONS (3)
  - Hodgkin^s disease [Unknown]
  - Off label use [Unknown]
  - Inability to afford medication [Unknown]
